FAERS Safety Report 17047905 (Version 2)
Quarter: 2020Q1

REPORT INFORMATION
  Report Type: Spontaneous
  Country: IN (occurrence: IN)
  Receive Date: 20191119
  Receipt Date: 20200204
  Transmission Date: 20200409
  Serious: Yes (Hospitalization)
  Sender: FDA-Public Use
  Company Number: IN-JNJFOC-20191111549

PATIENT
  Age: 49 Year
  Sex: Female
  Weight: 44.7 kg

DRUGS (15)
  1. AMOXICILLIN TRIHYDRATE [Suspect]
     Active Substance: AMOXICILLIN
     Indication: TUBERCULOSIS
     Route: 048
     Dates: start: 20190514
  2. METOCHLOPRAMIDE [Concomitant]
     Active Substance: METOCLOPRAMIDE HYDROCHLORIDE
     Indication: ANTIEMETIC SUPPORTIVE CARE
     Dosage: AS REQUIRED
     Route: 048
     Dates: start: 20190514
  3. ONDASETRON                         /00955301/ [Concomitant]
     Active Substance: ONDANSETRON
     Route: 065
     Dates: start: 2019
  4. IMIPENEM [Suspect]
     Active Substance: IMIPENEM
     Indication: TUBERCULOSIS
     Route: 042
     Dates: start: 20190514
  5. MOXIFLOXACIN. [Suspect]
     Active Substance: MOXIFLOXACIN
     Indication: TUBERCULOSIS
     Route: 048
     Dates: start: 20190514
  6. METFORMIN HYDROCHLORIDE W/TENELIGLIPTIN HYDRO [Concomitant]
     Indication: DIABETES MELLITUS
     Dosage: 500 MG PLUS 20 MG
     Route: 065
     Dates: start: 20190514
  7. CLOFAZIMINE [Suspect]
     Active Substance: CLOFAZIMINE
     Indication: TUBERCULOSIS
     Route: 048
     Dates: start: 20190514
  8. PYRIDOXINE [Concomitant]
     Active Substance: PYRIDOXINE
     Indication: NEUROPATHY PERIPHERAL
     Route: 048
     Dates: start: 20190514
  9. LEVOTHYROXINE SODIUM. [Concomitant]
     Active Substance: LEVOTHYROXINE SODIUM
     Indication: THYROID THERAPY
     Route: 048
     Dates: start: 20190514
  10. OMEPRAZOLE. [Concomitant]
     Active Substance: OMEPRAZOLE
     Indication: ANTACID THERAPY
     Route: 048
     Dates: start: 20190514
  11. BEDAQUILINE [Suspect]
     Active Substance: BEDAQUILINE
     Indication: TUBERCULOSIS
     Route: 048
     Dates: start: 20190514
  12. PREGABALIN. [Concomitant]
     Active Substance: PREGABALIN
     Indication: NEUROPATHY PERIPHERAL
     Route: 048
     Dates: start: 20190514
  13. H-INSULIN [Concomitant]
     Indication: DIABETES MELLITUS
     Dosage: 20 U
     Route: 058
     Dates: start: 20190514
  14. DELAMANID [Suspect]
     Active Substance: DELAMANID
     Indication: TUBERCULOSIS
     Route: 048
     Dates: start: 20190627
  15. ONDASETRON                         /00955301/ [Concomitant]
     Active Substance: ONDANSETRON
     Indication: ANTIEMETIC SUPPORTIVE CARE
     Route: 065
     Dates: start: 20190514

REACTIONS (2)
  - Diabetic ketoacidosis [Unknown]
  - Bacterial infection [Unknown]

NARRATIVE: CASE EVENT DATE: 20191105
